FAERS Safety Report 7217020-4 (Version None)
Quarter: 2010Q4

REPORT INFORMATION
  Report Type: 
  Country: None (occurrence: None)
  Receive Date: 20101230
  Receipt Date: 20101220
  Transmission Date: 20110411
  Serious: Yes (Death)
  Sender: FDA-Public Use
  Company Number: TAJPN-10-0680

PATIENT
  Age: 60 Year
  Sex: Female
  Weight: 57 kg

DRUGS (11)
  1. ABRAXANE (PACLITAXEL) [Suspect]
     Indication: BREAST CANCER
     Dosage: 403 MG
     Dates: start: 20101124, end: 20101124
  2. DUROTEP (FENTANYL) [Concomitant]
  3. ETODOLAC [Concomitant]
  4. SELBEX (TEPRENONE) [Concomitant]
  5. ADOFEED (FLURBIPROFEN) [Concomitant]
  6. KYTRIL [Concomitant]
  7. DECADRON [Concomitant]
  8. CLONAZEPAM [Concomitant]
  9. HYSRON (MEDROXYPROGESTERONE ACETATE) [Concomitant]
  10. PRIMPERAN TAB [Concomitant]
  11. AGENTS AFFECTING METABOLISM [Concomitant]

REACTIONS (18)
  - BLOOD BICARBONATE DECREASED [None]
  - BLOOD CHLORIDE DECREASED [None]
  - BLOOD CULTURE POSITIVE [None]
  - BLOOD LACTATE DEHYDROGENASE INCREASED [None]
  - BLOOD PH DECREASED [None]
  - BLOOD POTASSIUM INCREASED [None]
  - BODY TEMPERATURE DECREASED [None]
  - C-REACTIVE PROTEIN INCREASED [None]
  - CARDIO-RESPIRATORY ARREST [None]
  - LOSS OF CONSCIOUSNESS [None]
  - NEUROPATHY PERIPHERAL [None]
  - NEUTROPHIL COUNT DECREASED [None]
  - PCO2 INCREASED [None]
  - PO2 DECREASED [None]
  - RESTLESSNESS [None]
  - SEPSIS [None]
  - STAPHYLOCOCCAL INFECTION [None]
  - WHITE BLOOD CELL COUNT DECREASED [None]
